FAERS Safety Report 8045464-X (Version None)
Quarter: 2012Q1

REPORT INFORMATION
  Report Type: 
  Country: None (occurrence: None)
  Receive Date: 20120111
  Receipt Date: 20120111
  Transmission Date: 20120608
  Serious: Yes (Life-Threatening, Hospitalization, Other)
  Sender: FDA-Public Use
  Company Number: None

PATIENT
  Age: 55 Year
  Sex: Female
  Weight: 56.6996 kg

DRUGS (2)
  1. DEPAKOTE [Suspect]
     Indication: ENCEPHALITIS VIRAL
     Dosage: 500 MG. 1500MG/NIGHT ORAL
     Route: 048
     Dates: start: 20111122, end: 20111202
  2. LITHIUM CARBONATE [Suspect]
     Indication: ENCEPHALITIS VIRAL
     Dosage: 300 MG. 900MG/NIGHT ORAL
     Route: 048
     Dates: start: 20111122, end: 20111202

REACTIONS (12)
  - SKIN DISCOLOURATION [None]
  - ASTHMA [None]
  - SHOCK [None]
  - RENAL FAILURE ACUTE [None]
  - DEHYDRATION [None]
  - INCORRECT DOSE ADMINISTERED [None]
  - GENERALISED OEDEMA [None]
  - VOMITING [None]
  - CYANOSIS [None]
  - COLD SWEAT [None]
  - VISION BLURRED [None]
  - URTICARIA [None]
